FAERS Safety Report 8166055-6 (Version None)
Quarter: 2012Q1

REPORT INFORMATION
  Report Type: 
  Country: None (occurrence: None)
  Receive Date: 20120227
  Receipt Date: 20110228
  Transmission Date: 20120608
  Serious: No
  Sender: FDA-Public Use
  Company Number: US-MYLANLABS-2011S1004204

PATIENT
  Age: 44 Year
  Sex: Female

DRUGS (4)
  1. LEVOTHYROXINE SODIUM [Concomitant]
     Indication: HYPOTHYROIDISM
     Route: 048
  2. VITAMIN D [Concomitant]
  3. AMNESTEEM [Suspect]
     Indication: ACNE
     Route: 048
     Dates: start: 20110218
  4. VITAMIN E [Concomitant]
     Route: 048

REACTIONS (6)
  - HEADACHE [None]
  - RASH [None]
  - EYE SWELLING [None]
  - PRURITUS [None]
  - VISION BLURRED [None]
  - ERYTHEMA [None]
